FAERS Safety Report 23265251 (Version 1)
Quarter: 2023Q4

REPORT INFORMATION
  Report Type: Spontaneous
  Country: HR (occurrence: HR)
  Receive Date: 20231206
  Receipt Date: 20231206
  Transmission Date: 20240110
  Serious: Yes (Hospitalization)
  Sender: FDA-Public Use
  Company Number: HR-BAYER-2023A174007

PATIENT
  Age: 74 Year

DRUGS (15)
  1. RIVAROXABAN [Suspect]
     Active Substance: RIVAROXABAN
     Indication: Product used for unknown indication
     Dosage: 20 MG, QD
     Route: 048
  2. CLOPIDOGREL [Concomitant]
     Active Substance: CLOPIDOGREL BISULFATE
     Dosage: 75 MG, QD
  3. ASPIRIN [Concomitant]
     Active Substance: ASPIRIN
     Dosage: 100 MG, QD
  4. DAPAGLIFLOZIN [Concomitant]
     Active Substance: DAPAGLIFLOZIN
     Dosage: 10 MG, QD
  5. BISOPROLOL [Concomitant]
     Active Substance: BISOPROLOL\BISOPROLOL FUMARATE
     Dosage: 2.5 MG, QD
  6. RAMIPRIL [Concomitant]
     Active Substance: RAMIPRIL
     Dosage: 2.5 MG, QD
  7. EPLERENONE [Concomitant]
     Active Substance: EPLERENONE
     Dosage: 25 MG, QD
  8. TRIMETAZIDINE [Concomitant]
     Active Substance: TRIMETAZIDINE
     Dosage: 35 MG
  9. FUROSEMIDE [Concomitant]
     Active Substance: FUROSEMIDE
     Dosage: 40 MG, QD
  10. ATORVASTATIN [Concomitant]
     Active Substance: ATORVASTATIN
     Dosage: 80 MG, QD
  11. PANTOPRAZOLE [Concomitant]
     Active Substance: PANTOPRAZOLE
     Dosage: 40 MG, QD
  12. PERINDOPRIL [Concomitant]
     Active Substance: PERINDOPRIL
     Dosage: 5 MG, QD
  13. EZETIMIB/ATORVASTATIN RATIOPHARM [Concomitant]
     Dosage: 80 MG, QD
  14. NOVORAPID [Concomitant]
     Active Substance: INSULIN ASPART
  15. TOUJEO [Concomitant]
     Active Substance: INSULIN GLARGINE

REACTIONS (7)
  - Chest pain [Unknown]
  - Palpitations [Unknown]
  - Angiocardiogram [Unknown]
  - Coronary artery occlusion [Unknown]
  - Coronary artery stenosis [Unknown]
  - Coronary angioplasty [Unknown]
  - Percutaneous coronary intervention [Unknown]

NARRATIVE: CASE EVENT DATE: 20220401
